FAERS Safety Report 17843641 (Version 1)
Quarter: 2020Q2

REPORT INFORMATION
  Report Type: Report from Study
  Country: BR (occurrence: BR)
  Receive Date: 20200531
  Receipt Date: 20200531
  Transmission Date: 20200714
  Serious: Yes (Death, Hospitalization, Other)
  Sender: FDA-Public Use
  Company Number: BR-B.I. PHARMACEUTICALS,INC./RIDGEFIELD-2020-MR-027050

PATIENT
  Age: 40 Year
  Sex: Male
  Weight: 69 kg

DRUGS (3)
  1. OFEV [Suspect]
     Active Substance: NINTEDANIB
     Route: 048
     Dates: start: 2020
  2. PREDNISONA [Concomitant]
     Active Substance: PREDNISONE
     Indication: PRODUCT USED FOR UNKNOWN INDICATION
     Route: 065
  3. OFEV [Suspect]
     Active Substance: NINTEDANIB
     Indication: IDIOPATHIC PULMONARY FIBROSIS
     Route: 048
     Dates: start: 202002, end: 202003

REACTIONS (14)
  - Suffocation feeling [Not Recovered/Not Resolved]
  - Decreased appetite [Unknown]
  - Pneumothorax [Recovered/Resolved]
  - Malaise [Not Recovered/Not Resolved]
  - Alopecia [Unknown]
  - Haematoma [Unknown]
  - Abdominal distension [Unknown]
  - Pneumothorax [Fatal]
  - Secretion discharge [Not Recovered/Not Resolved]
  - Dyspnoea [Unknown]
  - Pulmonary oedema [Not Recovered/Not Resolved]
  - Functional gastrointestinal disorder [Unknown]
  - Dysuria [Unknown]
  - Immune system disorder [Unknown]

NARRATIVE: CASE EVENT DATE: 202003
